FAERS Safety Report 25340166 (Version 1)
Quarter: 2025Q2

REPORT INFORMATION
  Report Type: Report from Study
  Country: US (occurrence: US)
  Receive Date: 20250521
  Receipt Date: 20250521
  Transmission Date: 20250716
  Serious: Yes (Other)
  Sender: TAKEDA
  Company Number: US-TAKEDA-2025TUS004812

PATIENT
  Sex: Male

DRUGS (3)
  1. FRUQUINTINIB [Suspect]
     Active Substance: FRUQUINTINIB
     Indication: Pancreatic carcinoma
  2. FRUQUINTINIB [Suspect]
     Active Substance: FRUQUINTINIB
     Indication: Colon cancer
     Dosage: 5 MILLIGRAM, QD
  3. FRUQUINTINIB [Suspect]
     Active Substance: FRUQUINTINIB

REACTIONS (7)
  - Colon cancer [Unknown]
  - Bursitis [Unknown]
  - Skin fissures [Unknown]
  - Dry skin [Unknown]
  - Blister [Unknown]
  - Dysphonia [Unknown]
  - Aphonia [Unknown]
